FAERS Safety Report 15825954 (Version 1)
Quarter: 2018Q4

REPORT INFORMATION
  Report Type: Spontaneous
  Country: US (occurrence: US)
  Receive Date: 20181217
  Receipt Date: 20181217
  Transmission Date: 20190205
  Serious: Yes (Death, Hospitalization)
  Sender: FDA-Public Use
  Company Number: None

PATIENT
  Age: 10 Year
  Sex: Female
  Weight: 32.5 kg

DRUGS (1)
  1. GLEEVEC [Suspect]
     Active Substance: IMATINIB MESYLATE
     Dates: end: 20181209

REACTIONS (24)
  - Platelet count decreased [None]
  - Renal failure [None]
  - Disseminated intravascular coagulation [None]
  - Cardiac arrest [None]
  - Pulmonary haemorrhage [None]
  - Tachycardia [None]
  - Coronavirus test positive [None]
  - Respiratory distress [None]
  - Metabolic acidosis [None]
  - Septic shock [None]
  - Pulseless electrical activity [None]
  - Haemorrhage [None]
  - Pyrexia [None]
  - Haemoptysis [None]
  - Lung disorder [None]
  - Acute respiratory distress syndrome [None]
  - Respiratory failure [None]
  - Dyspnoea [None]
  - White blood cell count decreased [None]
  - Lung infiltration [None]
  - Urine output decreased [None]
  - Hypotension [None]
  - Streptococcus test positive [None]
  - Cardio-respiratory arrest [None]

NARRATIVE: CASE EVENT DATE: 20181210
